FAERS Safety Report 9283969 (Version 1)
Quarter: 2013Q2

REPORT INFORMATION
  Report Type: Spontaneous
  Country: US (occurrence: None)
  Receive Date: 20130503
  Receipt Date: 20130503
  Transmission Date: 20140414
  Serious: Yes (Other)
  Sender: FDA-Public Use
  Company Number: PR-AE13-000420

PATIENT
  Age: 55 Year
  Sex: Female

DRUGS (1)
  1. BC POWDER (ASPIRIN 845 MG/CAFFEINE 65 MG) [Suspect]
     Dosage: 1 POWDER,
     Route: 048
     Dates: start: 2009, end: 20130412

REACTIONS (3)
  - Drug abuse [None]
  - Convulsion [None]
  - Incorrect drug administration duration [None]
